FAERS Safety Report 5384581-X (Version None)
Quarter: 2007Q3

REPORT INFORMATION
  Report Type: 
  Country: None (occurrence: None)
  Receive Date: 20070711
  Receipt Date: 20070629
  Transmission Date: 20080115
  Serious: Yes (Other)
  Sender: FDA-Public Use
  Company Number: US-PFIZER INC-2007013861

PATIENT
  Sex: Male
  Weight: 86.2 kg

DRUGS (9)
  1. NEURONTIN [Suspect]
     Indication: NERVE INJURY
  2. NEURONTIN [Suspect]
     Indication: NEUROPATHY
  3. LYRICA [Suspect]
     Indication: NERVE INJURY
     Dosage: DAILY DOSE:250MG
  4. LYRICA [Suspect]
     Indication: NEUROPATHY
  5. ACIPHEX [Concomitant]
     Dosage: DAILY DOSE:40MG
  6. CALAN - SLOW RELEASE [Concomitant]
     Dosage: DAILY DOSE:180MG
  7. VALSARTAN [Concomitant]
     Dosage: DAILY DOSE:160MG
  8. ZETIA [Concomitant]
     Dosage: DAILY DOSE:10MG
  9. ASPIRIN [Concomitant]

REACTIONS (6)
  - CATARACT OPERATION [None]
  - EYE SWELLING [None]
  - JOINT SWELLING [None]
  - PHOTOPHOBIA [None]
  - VISION BLURRED [None]
  - WEIGHT INCREASED [None]
